FAERS Safety Report 26200147 (Version 1)
Quarter: 2025Q4

REPORT INFORMATION
  Report Type: Spontaneous
  Country: US (occurrence: US)
  Receive Date: 20251225
  Receipt Date: 20251225
  Transmission Date: 20260118
  Serious: No
  Sender: AMGEN
  Company Number: US-AMGEN-USASP2025251898

PATIENT
  Age: 51 Year
  Sex: Male

DRUGS (2)
  1. REPATHA [Suspect]
     Active Substance: EVOLOCUMAB
     Indication: Cardiovascular event prophylaxis
     Dosage: 140 MILLIGRAM, Q2WK
     Route: 058
     Dates: start: 202512
  2. REPATHA [Suspect]
     Active Substance: EVOLOCUMAB
     Dosage: UNK
     Route: 058

REACTIONS (3)
  - Fear of injection [Unknown]
  - Product storage error [Unknown]
  - Product administration error [Unknown]

NARRATIVE: CASE EVENT DATE: 20251114
